FAERS Safety Report 5725362-4 (Version None)
Quarter: 2008Q2

REPORT INFORMATION
  Report Type: 
  Country: None (occurrence: None)
  Receive Date: 20080501
  Receipt Date: 20080421
  Transmission Date: 20081010
  Serious: Yes (Hospitalization, Other)
  Sender: FDA-Public Use
  Company Number: US-PFIZER INC-2005133324

PATIENT
  Sex: Male
  Weight: 81.6 kg

DRUGS (3)
  1. CELEBREX [Suspect]
     Indication: ARTHRITIS
     Dates: start: 20000522, end: 20001101
  2. BEXTRA [Suspect]
     Indication: ARTHRITIS
     Dates: start: 20021001, end: 20031001
  3. VIOXX [Suspect]
     Indication: ARTHRITIS

REACTIONS (4)
  - CARDIOVASCULAR DISORDER [None]
  - MYOCARDIAL INFARCTION [None]
  - THROMBOSIS [None]
  - VASCULAR INJURY [None]
